FAERS Safety Report 21354630 (Version 1)
Quarter: 2022Q3

REPORT INFORMATION
  Report Type: Spontaneous
  Country: US (occurrence: None)
  Receive Date: 20220919
  Receipt Date: 20220919
  Transmission Date: 20221026
  Serious: No
  Sender: FDA-Public Use
  Company Number: None

PATIENT
  Age: 52 Year
  Sex: Female
  Weight: 77.6 kg

DRUGS (4)
  1. MAGNESIUM CITRATE SALINE LAXATIVE [Suspect]
     Active Substance: MAGNESIUM CITRATE
     Indication: Clostridium difficile infection
     Dosage: FREQUENCY : ONCE;?
     Route: 048
     Dates: start: 20220620, end: 20220620
  2. Multiple Vitamins-Minerals (CENTRUM ADULTS PO) [Concomitant]
     Dates: start: 20170814
  3. triamcinolone (KENALOG,ARISTOCORT) 0.1 % Apply externally Cream [Concomitant]
     Dates: start: 20110218
  4. SER-109 [Concomitant]
     Dates: start: 20220621, end: 20220623

REACTIONS (2)
  - Diarrhoea [None]
  - Abdominal pain [None]

NARRATIVE: CASE EVENT DATE: 20220708
